FAERS Safety Report 8413243-7 (Version None)
Quarter: 2012Q2

REPORT INFORMATION
  Report Type: 
  Country: None (occurrence: None)
  Receive Date: 20120605
  Receipt Date: 20120531
  Transmission Date: 20120825
  Serious: Yes (Other)
  Sender: FDA-Public Use
  Company Number: CH-PFIZER INC-2012044982

PATIENT
  Age: 70 Year
  Sex: Male

DRUGS (16)
  1. DURAGESIC-100 [Concomitant]
     Dosage: 25 UG / 72 HOURS
  2. SPASMO-URGENIN [Concomitant]
     Dosage: 1 DF, 2X/DAY (1-0-1)
  3. BISOPROLOL FUMARATE [Concomitant]
     Dosage: 1.25 MG, 1X/DAY (1/2 OF 2.5 MG IN THE MORNING)
  4. TRAZODONE HCL [Concomitant]
     Dosage: 75 MG ONCE DAILY (50 MG 1.5X/DAY, 0-0-1.5)
  5. MOVIPREP [Concomitant]
     Indication: CONSTIPATION
     Dosage: 1-2 DF, DAILY, AS NEEDED
  6. OXAZEPAM [Concomitant]
     Dosage: 52.5 MG DAILY (15 MG, 1-1/2-1-1)
  7. MADOPAR [Concomitant]
     Dosage: 125 MG, 3X/DAY (1-0-1-1)
  8. LYRICA [Suspect]
     Dosage: 50 MG, 1X/DAY
     Route: 048
  9. LYRICA [Suspect]
     Indication: GENERALISED ANXIETY DISORDER
     Dosage: 25 MG, 1X/DAY
     Route: 048
     Dates: start: 20110504
  10. MESALAMINE [Concomitant]
     Dosage: 500 MG, 3X/DAY (1-1-1)
  11. CALCIMAGON-D3 [Concomitant]
     Dosage: 1 DF, 2X/DAY (1-0-1)
  12. DESLORATADINE [Concomitant]
     Dosage: 5 MG, 1X/DAY (1-0-0)
  13. LYRICA [Suspect]
     Dosage: 75 MG, 2X/DAY
     Route: 048
     Dates: end: 20120211
  14. PANTOPRAZOLE [Concomitant]
     Dosage: 40 MG, 1X/DAY (1-0-0)
  15. ACETAMINOPHEN [Concomitant]
     Dosage: 500 MG, 3X/DAY (1-1-1)
  16. KEPPRA [Concomitant]
     Dosage: 500 MG, 2X/DAY (1-0-1)

REACTIONS (1)
  - HYPONATRAEMIA [None]
